FAERS Safety Report 24780675 (Version 1)
Quarter: 2024Q4

REPORT INFORMATION
  Report Type: Spontaneous
  Country: FR (occurrence: FR)
  Receive Date: 20241227
  Receipt Date: 20241227
  Transmission Date: 20250115
  Serious: Yes (Death, Other)
  Sender: AUROBINDO
  Company Number: FR-AFSSAPS-LY2024001908

PATIENT
  Age: 72 Year
  Sex: Female
  Weight: 68 kg

DRUGS (2)
  1. OXALIPLATIN [Suspect]
     Active Substance: OXALIPLATIN
     Indication: Adenocarcinoma of colon
     Dosage: 220 MILLIGRAM, 1 CYCLICAL
     Route: 065
     Dates: start: 20241010
  2. RALTITREXED [Suspect]
     Active Substance: RALTITREXED
     Indication: Adenocarcinoma of colon
     Dosage: 5 MILLIGRAM, 1 CYCLICAL
     Route: 065
     Dates: start: 20241010

REACTIONS (3)
  - Pancytopenia [Fatal]
  - Diarrhoea [Fatal]
  - Oesophagitis [Fatal]

NARRATIVE: CASE EVENT DATE: 20241018
